FAERS Safety Report 9788143 (Version 2)
Quarter: 2014Q1

REPORT INFORMATION
  Report Type: Spontaneous
  Country: US (occurrence: US)
  Receive Date: 20131230
  Receipt Date: 20140114
  Transmission Date: 20141002
  Serious: No
  Sender: FDA-Public Use
  Company Number: US-BAXTER-2013BAX052587

PATIENT
  Age: 58 Year
  Sex: Male

DRUGS (5)
  1. DIANEAL LOW CALCIUM (ULTRABAG) [Suspect]
     Indication: PERITONEAL DIALYSIS
     Route: 033
  2. DIANEAL LOW CALCIUM (ULTRABAG) [Suspect]
     Route: 033
  3. DIANEAL LOW CALCIUM (ULTRABAG) [Suspect]
     Indication: PERITONEAL DIALYSIS
     Route: 033
  4. EXTRANEAL [Suspect]
     Indication: PERITONEAL DIALYSIS
     Route: 033
  5. EXTRANEAL [Suspect]
     Route: 033

REACTIONS (4)
  - Peritoneal dialysis complication [Recovered/Resolved]
  - Local swelling [Recovered/Resolved]
  - Weight increased [Recovered/Resolved]
  - Ultrafiltration failure [Recovered/Resolved]
